FAERS Safety Report 18430613 (Version 4)
Quarter: 2021Q3

REPORT INFORMATION
  Report Type: Report from Study
  Country: FR (occurrence: FR)
  Receive Date: 20201027
  Receipt Date: 20210707
  Transmission Date: 20211014
  Serious: Yes (Hospitalization, Other)
  Sender: FDA-Public Use
  Company Number: NVSC2020FR172988

PATIENT
  Age: 62 Year
  Sex: Female
  Weight: 74.5 kg

DRUGS (5)
  1. ADOPORT [Suspect]
     Active Substance: TACROLIMUS
     Dosage: 1 MG, UNKNOWN
     Route: 048
     Dates: start: 20200605
  2. ADOPORT [Suspect]
     Active Substance: TACROLIMUS
     Indication: RENAL TRANSPLANT
     Dosage: 10 MG, UNKNOWN
     Route: 048
     Dates: start: 20200605
  3. ADOPORT [Suspect]
     Active Substance: TACROLIMUS
     Dosage: 12 MG
     Route: 048
     Dates: start: 20200605
  4. ADOPORT [Suspect]
     Active Substance: TACROLIMUS
     Dosage: 7 MG
     Route: 048
     Dates: start: 20201208
  5. ADOPORT [Suspect]
     Active Substance: TACROLIMUS
     Dosage: 8 MG
     Route: 048
     Dates: start: 20200605

REACTIONS (13)
  - Anaemia [Recovered/Resolved]
  - Arteriovenous fistula thrombosis [Recovered/Resolved]
  - Headache [Recovered/Resolved]
  - Hypertension [Not Recovered/Not Resolved]
  - Chest pain [Recovered/Resolved]
  - Abdominal pain [Recovering/Resolving]
  - General physical health deterioration [Recovered/Resolved]
  - Haematuria [Recovered/Resolved]
  - Incision site inflammation [Recovered/Resolved]
  - Arteriovenous fistula thrombosis [Recovered/Resolved]
  - Fatigue [Recovering/Resolving]
  - Dysuria [Recovered/Resolved]
  - Tremor [Recovering/Resolving]

NARRATIVE: CASE EVENT DATE: 20200606
